FAERS Safety Report 4973466-6 (Version None)
Quarter: 2006Q2

REPORT INFORMATION
  Report Type: 
  Country: None (occurrence: None)
  Receive Date: 20060413
  Receipt Date: 20060413
  Transmission Date: 20061013
  Serious: Yes (Hospitalization)
  Sender: FDA-Public Use
  Company Number: None

PATIENT
  Age: 40 Year
  Sex: Female

DRUGS (11)
  1. LITHIUM CARBONATE [Suspect]
     Indication: BIPOLAR DISORDER
     Dosage: 900 MG PO DAILY
     Route: 048
  2. LITHIUM [Concomitant]
  3. LEXAPRO [Concomitant]
  4. ACIPHEX [Concomitant]
  5. ATENOLOL [Concomitant]
  6. ATIVAN [Concomitant]
  7. PHENERGAN HCL [Concomitant]
  8. SYNTHROID [Concomitant]
  9. TRAZODONE HCL [Concomitant]
  10. NECON [Concomitant]
  11. CARAFATE [Concomitant]

REACTIONS (9)
  - ASTHENIA [None]
  - BACK INJURY [None]
  - CHEST DISCOMFORT [None]
  - DIARRHOEA [None]
  - FALL [None]
  - LETHARGY [None]
  - NAUSEA [None]
  - THERAPEUTIC AGENT TOXICITY [None]
  - VOMITING [None]
